FAERS Safety Report 5511138-X (Version None)
Quarter: 2007Q4

REPORT INFORMATION
  Report Type: 
  Country: None (occurrence: None)
  Receive Date: 20071109
  Receipt Date: 20071031
  Transmission Date: 20080405
  Serious: Yes (Hospitalization)
  Sender: FDA-Public Use
  Company Number: US-NOVOPROD-256392

PATIENT

DRUGS (1)
  1. NORDITROPIN NORDIFLEX [Suspect]
     Indication: DWARFISM
     Dosage: 1.2 MG, QD
     Route: 058
     Dates: start: 20060816, end: 20060822

REACTIONS (1)
  - CARDIAC FAILURE CONGESTIVE [None]
